FAERS Safety Report 14527231 (Version 1)
Quarter: 2018Q1

REPORT INFORMATION
  Report Type: Other
  Country: IT (occurrence: IT)
  Receive Date: 20180213
  Receipt Date: 20180213
  Transmission Date: 20180509
  Serious: Yes (Life-Threatening, Other)
  Sender: FDA-Public Use
  Company Number: IT-ALSI-201800096

PATIENT
  Age: 52 Year
  Sex: Male

DRUGS (2)
  1. COLISTIN [Suspect]
     Active Substance: COLISTIN
  2. 100% OXYGEN [Suspect]
     Active Substance: OXYGEN
     Indication: LIVER ABSCESS

REACTIONS (2)
  - Off label use [None]
  - Therapeutic product ineffective for unapproved indication [None]
